FAERS Safety Report 4383700-1 (Version None)
Quarter: 2004Q2

REPORT INFORMATION
  Report Type: 
  Country: None (occurrence: None)
  Receive Date: 20040618
  Receipt Date: 20040611
  Transmission Date: 20050107
  Serious: Yes (Death, Other)
  Sender: FDA-Public Use
  Company Number: 2015137

PATIENT
  Age: 37 Year
  Sex: Male
  Weight: 104.8 kg

DRUGS (9)
  1. OXYCONTIN [Suspect]
     Dosage: INTRAVENOUS
     Route: 042
  2. ALCOHOL (ETHANOL) [Suspect]
     Dosage: ORAL
     Route: 048
  3. ALLEGRA [Concomitant]
  4. NESTABS (VITAMIN D NOS, VITAMIN B NOS, TOCOPHEROL, RETINOL, MINERALS N [Concomitant]
  5. TRAZODONE HCL [Concomitant]
  6. NORVASC [Concomitant]
  7. VIAGRA [Concomitant]
  8. PAXIL [Concomitant]
  9. R-TANNATE (MEPYRAMINE TANNATE, CHLORPHENAMINE TANNATE, PHENYLPHRINE TA [Concomitant]

REACTIONS (12)
  - ACCIDENT [None]
  - ACCIDENTAL OVERDOSE [None]
  - BLOOD ALCOHOL INCREASED [None]
  - CARDIAC ARREST [None]
  - CARDIOMEGALY [None]
  - CORONARY ARTERY ATHEROSCLEROSIS [None]
  - HEPATIC STEATOSIS [None]
  - HEPATOMEGALY [None]
  - MEDICATION ERROR [None]
  - POLYSUBSTANCE ABUSE [None]
  - VENTRICULAR HYPERTROPHY [None]
  - VICTIM OF HOMICIDE [None]
